FAERS Safety Report 13307625 (Version 2)
Quarter: 2018Q1

REPORT INFORMATION
  Report Type: Spontaneous
  Country: US (occurrence: US)
  Receive Date: 20170308
  Receipt Date: 20180201
  Transmission Date: 20180508
  Serious: Yes (Life-Threatening, Hospitalization, Disabling, Other)
  Sender: FDA-Public Use
  Company Number: PHEH2017US006700

PATIENT
  Sex: Male

DRUGS (1)
  1. TASIGNA [Suspect]
     Active Substance: NILOTINIB
     Indication: PRODUCT USED FOR UNKNOWN INDICATION
     Route: 065

REACTIONS (27)
  - Cerebrovascular accident [Unknown]
  - Amnesia [Unknown]
  - Headache [Unknown]
  - Abdominal discomfort [Unknown]
  - Fluid retention [Unknown]
  - Depression [Unknown]
  - Apparent death [Unknown]
  - Blindness [Unknown]
  - Insomnia [Unknown]
  - Musculoskeletal discomfort [Unknown]
  - Eye disorder [Unknown]
  - Pigmentation disorder [Unknown]
  - Muscle swelling [Unknown]
  - Constipation [Unknown]
  - Night sweats [Unknown]
  - Reading disorder [Unknown]
  - Muscle twitching [Unknown]
  - Rash [Unknown]
  - Pruritus [Unknown]
  - Joint swelling [Unknown]
  - Fatigue [Unknown]
  - Cardiac disorder [Unknown]
  - Speech disorder [Unknown]
  - Memory impairment [Unknown]
  - Diarrhoea [Unknown]
  - Myalgia [Unknown]
  - Arthralgia [Unknown]
